FAERS Safety Report 24010567 (Version 3)
Quarter: 2024Q3

REPORT INFORMATION
  Report Type: Report from Study
  Country: TW (occurrence: TW)
  Receive Date: 20240625
  Receipt Date: 20240822
  Transmission Date: 20241017
  Serious: Yes (Hospitalization)
  Sender: PFIZER
  Company Number: TW-SEATTLE GENETICS-2024SGN05949

PATIENT
  Age: 79 Year
  Sex: Female

DRUGS (7)
  1. BRENTUXIMAB VEDOTIN [Suspect]
     Active Substance: BRENTUXIMAB VEDOTIN
     Indication: Diffuse large B-cell lymphoma refractory
     Dosage: DAY 1 OF EACH 21-DAY CYCLE ( Q21D), INFUSION
     Route: 042
     Dates: start: 20220822, end: 20240408
  2. INVESTIGATIONAL PRODUCT [Suspect]
     Active Substance: INVESTIGATIONAL PRODUCT
     Indication: Diffuse large B-cell lymphoma refractory
     Dosage: DAY 1 OF EACH 21-DAY CYCLE ( Q21D), INFUSION
     Route: 042
     Dates: start: 20220822, end: 20240408
  3. ADRIAMYCIN [Suspect]
     Active Substance: DOXORUBICIN HYDROCHLORIDE
     Indication: Diffuse large B-cell lymphoma
     Dosage: 76.5 MG (R-CHOP)
     Route: 042
     Dates: start: 20200813, end: 20201124
  4. LENALIDOMIDE [Suspect]
     Active Substance: LENALIDOMIDE
     Indication: Diffuse large B-cell lymphoma refractory
     Dosage: 5 MG, ONCE DAILY
     Route: 048
     Dates: start: 20220822, end: 20240428
  5. CYCLOPHOSPHAMIDE [Suspect]
     Active Substance: CYCLOPHOSPHAMIDE
     Indication: Diffuse large B-cell lymphoma
     Dosage: 1230 MG (R-CHOP)(R-CVOP)
     Route: 042
     Dates: start: 20200813, end: 20201124
  6. CYCLOPHOSPHAMIDE [Suspect]
     Active Substance: CYCLOPHOSPHAMIDE
     Dosage: 1230 MG (R-CHOP)(R-CVOP)
     Route: 042
     Dates: start: 20211025, end: 20220322
  7. RITUXIMAB [Suspect]
     Active Substance: RITUXIMAB
     Indication: Diffuse large B-cell lymphoma refractory
     Dosage: 1400 MG, EVERY 3 WEEKS
     Route: 058
     Dates: start: 20220822, end: 20240408

REACTIONS (2)
  - Second primary malignancy [Recovered/Resolved with Sequelae]
  - Acute myeloid leukaemia [Recovered/Resolved with Sequelae]

NARRATIVE: CASE EVENT DATE: 20240516
